FAERS Safety Report 9280988 (Version 1)
Quarter: 2013Q2

REPORT INFORMATION
  Report Type: Spontaneous
  Country: US (occurrence: None)
  Receive Date: 20130508
  Receipt Date: 20130508
  Transmission Date: 20140414
  Serious: Yes (Hospitalization)
  Sender: FDA-Public Use
  Company Number: None

PATIENT
  Age: 27 Year
  Sex: Female
  Weight: 103.8 kg

DRUGS (2)
  1. CYTARABINE [Suspect]
  2. IDARUBICIN [Suspect]

REACTIONS (9)
  - Pyrexia [None]
  - Blood pressure decreased [None]
  - Clostridium difficile infection [None]
  - Tachycardia [None]
  - Chest pain [None]
  - Fatigue [None]
  - Klebsiella infection [None]
  - Bacteraemia [None]
  - Ejection fraction decreased [None]
